FAERS Safety Report 5122585-2 (Version None)
Quarter: 2006Q4

REPORT INFORMATION
  Report Type: 
  Country: None (occurrence: None)
  Receive Date: 20061004
  Receipt Date: 20060915
  Transmission Date: 20070319
  Serious: Yes (Other)
  Sender: FDA-Public Use
  Company Number: GB200607004764

PATIENT
  Age: 61 Year
  Sex: Female

DRUGS (1)
  1. EVISTA (RALOXIFENE HYDROCHLORIDE UNKNOWN FOMULATION) UNKNOWN [Suspect]
     Indication: DRUG USE FOR UNKNOWN INDICATION
     Dosage: 60 MG
     Dates: start: 20030316, end: 20060726

REACTIONS (1)
  - COLITIS COLLAGENOUS [None]
